FAERS Safety Report 17638231 (Version 1)
Quarter: 2020Q2

REPORT INFORMATION
  Report Type: Spontaneous
  Country: US (occurrence: US)
  Receive Date: 20200407
  Receipt Date: 20200407
  Transmission Date: 20200713
  Serious: Yes (Other)
  Sender: FDA-Public Use
  Company Number: None

PATIENT
  Age: 72 Year
  Sex: Female
  Weight: 62.55 kg

DRUGS (8)
  1. IMATINIB. [Suspect]
     Active Substance: IMATINIB MESYLATE
     Indication: GASTROINTESTINAL NEOPLASM
     Route: 048
     Dates: start: 20200123
  2. ASCORBIC ACID. [Concomitant]
     Active Substance: ASCORBIC ACID
  3. OXYCODONE [Concomitant]
     Active Substance: OXYCODONE
  4. UBIQUINOL [Concomitant]
     Active Substance: UBIQUINOL
  5. SENNA-DOCUSATE [Concomitant]
     Active Substance: DOCUSATE SODIUM\SENNOSIDES
  6. MULTIVITAMIN [Concomitant]
     Active Substance: VITAMINS
  7. ONDANSETRON [Concomitant]
     Active Substance: ONDANSETRON
  8. HYDROCODONE BITARTRATE AND ACETAMINOPHEN [Concomitant]
     Active Substance: ACETAMINOPHEN\HYDROCODONE BITARTRATE

REACTIONS (1)
  - Vomiting [None]

NARRATIVE: CASE EVENT DATE: 20200407
